FAERS Safety Report 18793646 (Version 2)
Quarter: 2021Q1

REPORT INFORMATION
  Report Type: Report from Study
  Country: US (occurrence: US)
  Receive Date: 20210127
  Receipt Date: 20210204
  Transmission Date: 20210419
  Serious: Yes (Other)
  Sender: FDA-Public Use
  Company Number: US-VIIV HEALTHCARE LIMITED-US2021GSK016259

PATIENT
  Age: 3 Year
  Sex: Female

DRUGS (3)
  1. ACYCLOVIR. [Concomitant]
     Active Substance: ACYCLOVIR
  2. FOLATE SUPPLEMENT [Concomitant]
  3. ABACAVIRSULPHATE+DOLUTEGRAVIR+LAMIVUDINE [Suspect]
     Active Substance: ABACAVIR SULFATE\DOLUTEGRAVIR SODIUM\LAMIVUDINE
     Indication: HIV INFECTION
     Dosage: 50 MG, QD
     Route: 064
     Dates: start: 20160501

REACTIONS (1)
  - Autism spectrum disorder [Unknown]

NARRATIVE: CASE EVENT DATE: 20191023
